FAERS Safety Report 7892529 (Version 3)
Quarter: 2013Q2

REPORT INFORMATION
  Report Type: Spontaneous
  Country: US (occurrence: US)
  Receive Date: 20110411
  Receipt Date: 20130425
  Transmission Date: 20140414
  Serious: Yes (Hospitalization)
  Sender: FDA-Public Use
  Company Number: US-BAYER-2011-029239

PATIENT
  Age: 22 Year
  Sex: Female
  Weight: 155 kg

DRUGS (7)
  1. YAZ [Suspect]
     Indication: CONTRACEPTION
     Dosage: UNK
     Dates: start: 2008, end: 20090124
  2. YAZ [Suspect]
     Indication: MENSTRUATION IRREGULAR
  3. YAZ [Suspect]
     Indication: PREMENSTRUAL SYNDROME
  4. ADIPEX [Concomitant]
     Indication: WEIGHT DECREASED
     Dosage: UNK
     Dates: start: 20090125, end: 20090125
  5. WYSTAL [Concomitant]
  6. VITAMIN C [Concomitant]
     Indication: IRON DEFICIENCY ANAEMIA
  7. IRON [Concomitant]
     Indication: IRON DEFICIENCY ANAEMIA

REACTIONS (6)
  - Pulmonary embolism [None]
  - Deep vein thrombosis [None]
  - Pain [None]
  - Emotional distress [Unknown]
  - Anxiety [Unknown]
  - Fear of disease [None]
